FAERS Safety Report 15580733 (Version 1)
Quarter: 2018Q4

REPORT INFORMATION
  Report Type: Spontaneous
  Country: US (occurrence: US)
  Receive Date: 20181103
  Receipt Date: 20181103
  Transmission Date: 20190205
  Serious: Yes (Disabling)
  Sender: FDA-Public Use
  Company Number: None

PATIENT
  Age: 28 Year
  Sex: Female
  Weight: 62.1 kg

DRUGS (4)
  1. LUPRON [Suspect]
     Active Substance: LEUPROLIDE ACETATE
     Indication: ENDOMETRIOSIS
     Dosage: ?          QUANTITY:2 INJECTION(S);OTHER FREQUENCY:3 MONTHS;OTHER ROUTE:HIP INJECTION?
  2. RED RASPBERRY TEA [Concomitant]
  3. NEXPLANON [Concomitant]
     Active Substance: ETONOGESTREL
  4. TRAMADOL. [Concomitant]
     Active Substance: TRAMADOL

REACTIONS (15)
  - Muscle spasms [None]
  - Hot flush [None]
  - Menorrhagia [None]
  - Emotional disorder [None]
  - Fatigue [None]
  - Presyncope [None]
  - Suicidal ideation [None]
  - Nausea [None]
  - Peripheral swelling [None]
  - Weight decreased [None]
  - Gait disturbance [None]
  - Hypoaesthesia [None]
  - Night sweats [None]
  - Bone pain [None]
  - Paraesthesia [None]

NARRATIVE: CASE EVENT DATE: 20150302
